FAERS Safety Report 26062974 (Version 2)
Quarter: 2025Q4

REPORT INFORMATION
  Report Type: Spontaneous
  Country: CN (occurrence: CN)
  Receive Date: 20251119
  Receipt Date: 20251231
  Transmission Date: 20260117
  Serious: Yes (Other)
  Sender: ABBVIE
  Company Number: CN-ABBVIE-6552277

PATIENT
  Age: 64 Year
  Sex: Female
  Weight: 48 kg

DRUGS (2)
  1. VENETOCLAX [Suspect]
     Active Substance: VENETOCLAX
     Indication: Acute myelomonocytic leukaemia
     Route: 048
     Dates: start: 20250925, end: 20251010
  2. CYTARABINE [Suspect]
     Active Substance: CYTARABINE
     Indication: Acute myelomonocytic leukaemia
     Route: 041
     Dates: start: 20250925, end: 20250927

REACTIONS (6)
  - Pruritus [Recovering/Resolving]
  - Gastrointestinal disorder [Recovering/Resolving]
  - Pruritus [Recovering/Resolving]
  - Gastrooesophageal reflux disease [Unknown]
  - Respiratory tract congestion [Unknown]
  - Dyspepsia [Unknown]

NARRATIVE: CASE EVENT DATE: 20250925
